FAERS Safety Report 25010097 (Version 2)
Quarter: 2025Q1

REPORT INFORMATION
  Report Type: Spontaneous
  Country: US (occurrence: US)
  Receive Date: 20250225
  Receipt Date: 20250312
  Transmission Date: 20250409
  Serious: No
  Sender: PFIZER
  Company Number: US-PFIZER INC-202500041862

PATIENT
  Age: 75 Year
  Sex: Male
  Weight: 90.703 kg

DRUGS (1)
  1. VYNDAMAX [Suspect]
     Active Substance: TAFAMIDIS
     Indication: Cardiac amyloidosis
     Dosage: 60 MG(AS REPORTED), 1X/DAY
     Route: 048
     Dates: start: 2024

REACTIONS (2)
  - Product packaging difficult to open [Unknown]
  - Pain in extremity [Unknown]
